FAERS Safety Report 23114120 (Version 1)
Quarter: 2023Q4

REPORT INFORMATION
  Report Type: Spontaneous
  Country: US (occurrence: US)
  Receive Date: 20231027
  Receipt Date: 20231027
  Transmission Date: 20240110
  Serious: No
  Sender: FDA-Public Use
  Company Number: US-GALDERMA-US2023013908

PATIENT

DRUGS (16)
  1. PROACTIV MD ADAPALENE ACNE TREATMENT [Suspect]
     Active Substance: ADAPALENE
     Indication: Acne
     Dosage: 1 DOSAGE FORM, QD
     Route: 061
     Dates: start: 202306, end: 202308
  2. PROACTIV MD ADAPALENE ACNE TREATMENT [Suspect]
     Active Substance: ADAPALENE
     Indication: Skin discolouration
  3. Proactiv MD Ultra Gentle Cleanser [Concomitant]
     Indication: Acne
     Dosage: 1 DOSAGE FORM, DAILY
     Route: 061
     Dates: start: 202306, end: 202308
  4. Proactiv MD Ultra Gentle Cleanser [Concomitant]
     Indication: Skin discolouration
  5. Proactiv MD Ultra Hydrating Moisturizer [Concomitant]
     Indication: Acne
     Dosage: 1 DOSAGE FORM, DAILY
     Route: 061
     Dates: start: 202306, end: 202308
  6. Proactiv MD Ultra Hydrating Moisturizer [Concomitant]
     Indication: Skin discolouration
  7. PROACTIV ACNE BODY WASH [Concomitant]
     Active Substance: SALICYLIC ACID
     Indication: Acne
     Dosage: 1 DOSAGE FORM, DAILY
     Route: 061
     Dates: start: 202306, end: 202308
  8. PROACTIV ACNE BODY WASH [Concomitant]
     Active Substance: SALICYLIC ACID
     Indication: Skin discolouration
  9. Proactiv Post Acne Dark Mark Relief [Concomitant]
     Indication: Acne
     Dosage: 1 DOSAGE FORM, DAILY
     Route: 061
     Dates: start: 202306, end: 202308
  10. Proactiv Post Acne Dark Mark Relief [Concomitant]
     Indication: Skin discolouration
  11. Proactiv Post Acne Scar Gel [Concomitant]
     Indication: Acne
     Dosage: 1 DOSAGE FORM, DAILY
     Route: 061
     Dates: start: 202306, end: 202308
  12. Proactiv Post Acne Scar Gel [Concomitant]
     Indication: Skin discolouration
  13. Proactiv Zits Happen Patches [Concomitant]
     Indication: Acne
     Dosage: 1 DOSAGE FORM, DAILY
     Route: 061
     Dates: start: 202306, end: 202308
  14. Proactiv Zits Happen Patches [Concomitant]
     Indication: Skin discolouration
  15. PROACTIV BLACKHEAD DISSOLVING [Concomitant]
     Active Substance: SALICYLIC ACID
     Indication: Acne
     Dosage: 1 DOSAGE FORM, DAILY
     Route: 061
     Dates: start: 202306, end: 202308
  16. PROACTIV BLACKHEAD DISSOLVING [Concomitant]
     Active Substance: SALICYLIC ACID
     Indication: Skin discolouration

REACTIONS (1)
  - Acne [Recovering/Resolving]

NARRATIVE: CASE EVENT DATE: 20230601
